FAERS Safety Report 16801071 (Version 1)
Quarter: 2019Q3

REPORT INFORMATION
  Report Type: Spontaneous
  Country: US (occurrence: US)
  Receive Date: 20190912
  Receipt Date: 20190912
  Transmission Date: 20191005
  Serious: No
  Sender: FDA-Public Use
  Company Number: US-ASTELLAS-2019US023291

PATIENT
  Age: 74 Year
  Sex: Male

DRUGS (2)
  1. XTANDI [Suspect]
     Active Substance: ENZALUTAMIDE
     Dosage: 120 MG, ONCE DAILY (40 MG 3 CAPSULES DAILY)
     Route: 048
     Dates: start: 20190409, end: 20190528
  2. XTANDI [Suspect]
     Active Substance: ENZALUTAMIDE
     Indication: PROSTATE CANCER
     Dosage: 120 MG, ONCE DAILY (40 MG 3 CAPSULES DAILY)
     Route: 048
     Dates: start: 20190402, end: 20190406

REACTIONS (4)
  - Underdose [Unknown]
  - Dyspnoea [Unknown]
  - Lip swelling [Recovered/Resolved]
  - Hypoaesthesia [Recovered/Resolved]

NARRATIVE: CASE EVENT DATE: 20190402
